FAERS Safety Report 12337416 (Version 3)
Quarter: 2016Q2

REPORT INFORMATION
  Report Type: Spontaneous
  Country: US (occurrence: US)
  Receive Date: 20160505
  Receipt Date: 20160616
  Transmission Date: 20160815
  Serious: Yes (Other)
  Sender: FDA-Public Use
  Company Number: US-MDT-ADR-2016-00804

PATIENT
  Age: 46 Year
  Sex: Female

DRUGS (1)
  1. BACLOFEN. [Suspect]
     Active Substance: BACLOFEN
     Dosage: 348.2 MCG/DAY
     Route: 037

REACTIONS (3)
  - Clonus [Unknown]
  - Muscle tightness [Unknown]
  - Hypertonia [Unknown]
